FAERS Safety Report 5638802-6 (Version None)
Quarter: 2008Q1

REPORT INFORMATION
  Report Type: 
  Country: None (occurrence: None)
  Receive Date: 20080226
  Receipt Date: 20070410
  Transmission Date: 20080703
  Serious: Yes (Hospitalization)
  Sender: FDA-Public Use
  Company Number: US-ASTRAZENECA-2007UW02086

PATIENT
  Age: 17637 Day
  Sex: Male
  Weight: 119.5 kg

DRUGS (1)
  1. SEROQUEL [Suspect]
     Indication: BIPOLAR DISORDER
     Route: 048
     Dates: start: 20020101

REACTIONS (5)
  - ALCOHOLISM [None]
  - CONFUSIONAL STATE [None]
  - HALLUCINATION [None]
  - HEADACHE [None]
  - TYPE 2 DIABETES MELLITUS [None]
